FAERS Safety Report 10278140 (Version 2)
Quarter: 2014Q3

REPORT INFORMATION
  Report Type: Report from Study
  Country: BR (occurrence: BR)
  Receive Date: 20140704
  Receipt Date: 20140704
  Transmission Date: 20150326
  Serious: Yes (Other)
  Sender: FDA-Public Use
  Company Number: PHHY2013BR125363

PATIENT
  Sex: Female
  Weight: 47 kg

DRUGS (5)
  1. OSTEONUTRI [Concomitant]
     Dosage: UNK UKN, UNK
     Dates: start: 2012
  2. LIBIAM [Concomitant]
     Dosage: UNK UKN, UNK
     Dates: start: 2011
  3. RIVOTRIL [Concomitant]
     Active Substance: CLONAZEPAM
     Dosage: UNK UKN, UNK
     Dates: start: 2010
  4. VITERGAN MASTER [Concomitant]
     Dosage: UNK UKN, UNK
     Dates: start: 2013
  5. ACLASTA [Suspect]
     Active Substance: ZOLEDRONIC ACID
     Indication: OSTEOPOROSIS
     Dosage: 5 MG, UNK
     Route: 042
     Dates: start: 20130901

REACTIONS (9)
  - Abasia [Recovering/Resolving]
  - Malaise [Unknown]
  - Rheumatic disorder [Unknown]
  - Renal disorder [Recovering/Resolving]
  - Bladder disorder [Recovering/Resolving]
  - Pain [Recovering/Resolving]
  - Cystitis [Recovering/Resolving]
  - Asthenia [Recovering/Resolving]
  - Muscle atrophy [Unknown]
